FAERS Safety Report 20459679 (Version 1)
Quarter: 2022Q1

REPORT INFORMATION
  Report Type: Spontaneous
  Country: US (occurrence: US)
  Receive Date: 20220211
  Receipt Date: 20220211
  Transmission Date: 20220423
  Serious: No
  Sender: FDA-Public Use
  Company Number: US-VERICEL-US-VCEL-21-000131

PATIENT
  Sex: Male

DRUGS (2)
  1. MACI [Suspect]
     Active Substance: AUTOLOGOUS CULTURED CHONDROCYTES\SUS SCROFA COLLAGEN
     Indication: Arthralgia
     Dosage: 1 DOSAGE FORM, SINGLE, LEFT KNEE
     Route: 050
     Dates: start: 20200825
  2. MACI [Suspect]
     Active Substance: AUTOLOGOUS CULTURED CHONDROCYTES\SUS SCROFA COLLAGEN
     Dosage: 1 DOSAGE FORM, SINGLE, RIGHT KNEE
     Route: 050
     Dates: start: 20210319

REACTIONS (3)
  - Discomfort [Recovering/Resolving]
  - Tendonitis [Recovering/Resolving]
  - Swelling [Recovering/Resolving]
